FAERS Safety Report 19282643 (Version 1)
Quarter: 2021Q2

REPORT INFORMATION
  Report Type: Spontaneous
  Country: US (occurrence: US)
  Receive Date: 20210521
  Receipt Date: 20210521
  Transmission Date: 20210717
  Serious: No
  Sender: FDA-Public Use
  Company Number: US-ACCORD-221321

PATIENT
  Age: 67 Year
  Sex: Female
  Weight: 77.11 kg

DRUGS (1)
  1. QUETIAPINE FUMARATE ACCORD [Suspect]
     Active Substance: QUETIAPINE FUMARATE
     Indication: SCHIZOPHRENIA
     Dosage: STRENGTH 400 MG(TWICE AT NIGHT)
     Route: 048
     Dates: start: 20210129

REACTIONS (1)
  - Drug ineffective [Unknown]

NARRATIVE: CASE EVENT DATE: 20210316
